FAERS Safety Report 4739453-8 (Version None)
Quarter: 2005Q3

REPORT INFORMATION
  Report Type: 
  Country: None (occurrence: None)
  Receive Date: 20050808
  Receipt Date: 20050808
  Transmission Date: 20060218
  Serious: Yes (Life-Threatening, Hospitalization)
  Sender: FDA-Public Use
  Company Number: None

PATIENT
  Age: 41 Year
  Sex: Male
  Weight: 95.2554 kg

DRUGS (1)
  1. SEPTOCAINE [Suspect]
     Dosage: INJECTION
     Dates: start: 20050725, end: 20050802

REACTIONS (16)
  - ANAPHYLACTIC REACTION [None]
  - ANXIETY [None]
  - DIZZINESS [None]
  - DYSPHONIA [None]
  - FACE OEDEMA [None]
  - FATIGUE [None]
  - HEART RATE IRREGULAR [None]
  - MALAISE [None]
  - NAUSEA [None]
  - OEDEMA MOUTH [None]
  - RASH [None]
  - RESTLESSNESS [None]
  - SOMNOLENCE [None]
  - TREMOR [None]
  - URTICARIA [None]
  - VISION BLURRED [None]
